FAERS Safety Report 21434168 (Version 2)
Quarter: 2022Q4

REPORT INFORMATION
  Report Type: Spontaneous
  Country: CA (occurrence: CA)
  Receive Date: 20221010
  Receipt Date: 20221107
  Transmission Date: 20230112
  Serious: Yes (Other)
  Sender: FDA-Public Use
  Company Number: CA-SA-2022SA411601

PATIENT
  Age: 29 Year

DRUGS (5)
  1. DUPIXENT [Suspect]
     Active Substance: DUPILUMAB
     Indication: Dermatitis atopic
     Dosage: UNK UNK, QOW
  2. NICOTINE [Concomitant]
     Active Substance: NICOTINE
     Dosage: UNK
  3. UPADACITINIB [Concomitant]
     Active Substance: UPADACITINIB
     Dosage: UNK
  4. BENZACLIN [Concomitant]
     Active Substance: BENZOYL PEROXIDE\CLINDAMYCIN PHOSPHATE
     Dosage: UNK
  5. CLINDAMYCIN [Concomitant]
     Active Substance: CLINDAMYCIN
     Dosage: UNK

REACTIONS (6)
  - Ocular surface disease [Recovered/Resolved]
  - Blepharitis [Recovered/Resolved]
  - Conjunctivitis [Recovered/Resolved]
  - Nodule [Recovered/Resolved]
  - Corneal infiltrates [Recovered/Resolved]
  - Eye disorder [Unknown]

NARRATIVE: CASE EVENT DATE: 20180601
